FAERS Safety Report 4619875-6 (Version None)
Quarter: 2005Q1

REPORT INFORMATION
  Report Type: 
  Country: None (occurrence: None)
  Receive Date: 20050328
  Receipt Date: 20050316
  Transmission Date: 20050727
  Serious: Yes (Other)
  Sender: FDA-Public Use
  Company Number: US-JNJFOC-20050104237

PATIENT
  Sex: Male
  Weight: 80.29 kg

DRUGS (2)
  1. REMICADE [Suspect]
     Indication: RHEUMATOID ARTHRITIS
     Dosage: (3 VIALS)RECEIVED FOR APPROXIMATELY 3-4 YEARS, LAST INFUSION GREATER THAN 1 YEAR AGO.
     Route: 042
  2. ASULFADINE [Concomitant]

REACTIONS (1)
  - PULMONARY TUBERCULOSIS [None]
